FAERS Safety Report 7091065-X (Version None)
Quarter: 2010Q4

REPORT INFORMATION
  Report Type: 
  Country: None (occurrence: None)
  Receive Date: 20101109
  Receipt Date: 20101027
  Transmission Date: 20110411
  Serious: Yes (Other)
  Sender: FDA-Public Use
  Company Number: PHHY2010NL71837

PATIENT
  Sex: Female

DRUGS (6)
  1. SYNTOCINON [Suspect]
  2. FOLIC ACID [Concomitant]
     Dosage: 0.4 MG DAILY
     Dates: start: 20090301
  3. TAMIFLU [Concomitant]
     Dosage: UNK
     Dates: start: 20091120
  4. TAMIFLU [Concomitant]
     Dosage: UNK
     Dates: start: 20091201
  5. PARACETAMOL [Concomitant]
  6. PETHIDINE [Concomitant]

REACTIONS (3)
  - CAESAREAN SECTION [None]
  - DRUG ADMINISTRATION ERROR [None]
  - DRUG EXPOSURE DURING PREGNANCY [None]
